FAERS Safety Report 24450389 (Version 1)
Quarter: 2024Q4

REPORT INFORMATION
  Report Type: Spontaneous
  Country: US (occurrence: None)
  Receive Date: 20241016
  Receipt Date: 20241016
  Transmission Date: 20250114
  Serious: Yes (Hospitalization, Other)
  Sender: Public
  Company Number: None

PATIENT
  Age: 61 Year
  Sex: Male

DRUGS (1)
  1. SEROSTIM [Suspect]
     Active Substance: SOMATROPIN
     Indication: Endocrine disorder
     Dosage: FREQUENCY : DAILY;?

REACTIONS (4)
  - Respiratory syncytial virus infection [None]
  - Fall [None]
  - Hip fracture [None]
  - Therapy interrupted [None]
